FAERS Safety Report 13727147 (Version 3)
Quarter: 2017Q4

REPORT INFORMATION
  Report Type: Spontaneous
  Country: AT (occurrence: AT)
  Receive Date: 20170706
  Receipt Date: 20171220
  Transmission Date: 20180320
  Serious: Yes (Other)
  Sender: FDA-Public Use
  Company Number: AT-ELI_LILLY_AND_COMPANY-AT201706012471

PATIENT
  Age: 33 Year
  Sex: Male

DRUGS (12)
  1. OLANZAPINE. [Interacting]
     Active Substance: OLANZAPINE
     Dosage: 5 MG, UNKNOWN
     Route: 048
     Dates: start: 20170127, end: 20170130
  2. QUETIAPINE. [Interacting]
     Active Substance: QUETIAPINE
     Indication: PRODUCT USED FOR UNKNOWN INDICATION
     Dosage: 400 MG, UNKNOWN
     Route: 048
  3. QUETIAPINE. [Interacting]
     Active Substance: QUETIAPINE
     Dosage: 200 UNK, UNK
     Route: 048
  4. SERTRALINE [Interacting]
     Active Substance: SERTRALINE HYDROCHLORIDE
     Dosage: 200 MG, UNK
     Route: 048
     Dates: start: 201601
  5. PREGABALIN. [Interacting]
     Active Substance: PREGABALIN
     Dosage: 1200 UNK, UNK
     Route: 048
  6. OLANZAPINE. [Interacting]
     Active Substance: OLANZAPINE
     Dosage: 2.5 MG, UNKNOWN
     Route: 048
     Dates: start: 20170131
  7. SERTRALINE [Interacting]
     Active Substance: SERTRALINE HYDROCHLORIDE
     Indication: PRODUCT USED FOR UNKNOWN INDICATION
     Dosage: 50 MG, UNKNOWN
     Route: 048
     Dates: start: 201512, end: 201601
  8. PREGABALIN. [Interacting]
     Active Substance: PREGABALIN
     Dosage: 900 MG, UNKNOWN
     Route: 048
  9. OLANZAPINE. [Suspect]
     Active Substance: OLANZAPINE
     Indication: PRODUCT USED FOR UNKNOWN INDICATION
     Dosage: 10 MG, UNKNOWN
     Route: 048
     Dates: start: 201604, end: 20170126
  10. ARIPIPRAZOLE. [Concomitant]
     Active Substance: ARIPIPRAZOLE
     Indication: PRODUCT USED FOR UNKNOWN INDICATION
     Dosage: 10 MG, UNKNOWN
     Route: 065
  11. SERTRALINE [Interacting]
     Active Substance: SERTRALINE HYDROCHLORIDE
     Dosage: 150 UNK, UNK
     Route: 048
  12. PREGABALIN. [Interacting]
     Active Substance: PREGABALIN
     Indication: PRODUCT USED FOR UNKNOWN INDICATION
     Dosage: 600 MG, UNK
     Route: 048

REACTIONS (5)
  - Blood triglycerides increased [Unknown]
  - Blood cholesterol increased [Unknown]
  - Fatigue [Unknown]
  - Drug interaction [Not Recovered/Not Resolved]
  - Weight increased [Not Recovered/Not Resolved]

NARRATIVE: CASE EVENT DATE: 201601
